FAERS Safety Report 7513505-1 (Version None)
Quarter: 2011Q2

REPORT INFORMATION
  Report Type: 
  Country: None (occurrence: None)
  Receive Date: 20110531
  Receipt Date: 20110516
  Transmission Date: 20111010
  Serious: No
  Sender: FDA-Public Use
  Company Number: US-CELGENEUS-163-20785-11033196

PATIENT
  Sex: Female
  Weight: 83 kg

DRUGS (4)
  1. DIGOXIN [Concomitant]
     Indication: ATRIAL FIBRILLATION
     Dosage: .25 MILLIGRAM
     Route: 048
  2. FERROUS SULFATE TAB [Suspect]
     Route: 065
  3. LASIX [Concomitant]
     Dosage: 40 MILLIGRAM
     Route: 048
  4. THALOMID [Suspect]
     Dosage: 100 MILLIGRAM
     Route: 048
     Dates: start: 20110101

REACTIONS (3)
  - OEDEMA PERIPHERAL [None]
  - MELAENA [None]
  - PARAESTHESIA [None]
